FAERS Safety Report 8793390 (Version 1)
Quarter: 2012Q4

REPORT INFORMATION
  Report Type: 
  Country: IT (occurrence: IT)
  Receive Date: 20120918
  Receipt Date: 20120918
  Transmission Date: 20130627
  Serious: Yes (Hospitalization)
  Sender: FDA-Public Use
  Company Number: IT-JNJFOC-20120904883

PATIENT
  Age: 48 Year
  Sex: Female

DRUGS (8)
  1. CAELYX [Suspect]
     Indication: BREAST CANCER
     Route: 042
     Dates: start: 20120728, end: 20120829
  2. ENDOXAN [Concomitant]
     Indication: BREAST CANCER
     Route: 042
     Dates: start: 20120728, end: 20120829
  3. DOCETAXEL [Concomitant]
     Indication: BREAST CANCER
     Route: 042
     Dates: start: 20120728, end: 20120829
  4. ALOXI [Concomitant]
     Indication: PROPHYLAXIS OF NAUSEA AND VOMITING
     Route: 042
     Dates: start: 20120728, end: 20120829
  5. RANIDIL [Concomitant]
     Indication: PROPHYLAXIS AGAINST GASTROINTESTINAL ULCER
     Route: 042
     Dates: start: 20120728, end: 20120829
  6. SOLDESAM [Concomitant]
     Indication: ANAPHYLAXIS PROPHYLAXIS
     Route: 042
     Dates: start: 20120728, end: 20120829
  7. EUTIROX [Concomitant]
     Indication: HYPOTHYROIDISM
     Route: 048
  8. NEULASTA [Concomitant]
     Indication: DRUG TOXICITY PROPHYLAXIS
     Route: 042
     Dates: start: 20120730, end: 20120829

REACTIONS (3)
  - Erythema [Recovered/Resolved]
  - Throat tightness [Recovered/Resolved]
  - Infusion related reaction [Recovered/Resolved]
